FAERS Safety Report 19985299 (Version 1)
Quarter: 2021Q4

REPORT INFORMATION
  Report Type: Spontaneous
  Country: US (occurrence: US)
  Receive Date: 20211021
  Receipt Date: 20211021
  Transmission Date: 20220303
  Serious: No
  Sender: FDA-Public Use
  Company Number: None

PATIENT
  Age: 56 Year
  Sex: Female

DRUGS (1)
  1. ENBREL [Suspect]
     Active Substance: ETANERCEPT
     Indication: Rheumatoid arthritis
     Dosage: USING THE AUTO TOUCH DEVICE IN THE ABDOMEN, THIGH, UPPER
     Route: 058
     Dates: start: 202009

REACTIONS (1)
  - Unevaluable event [None]
